FAERS Safety Report 7944663-2 (Version None)
Quarter: 2011Q4

REPORT INFORMATION
  Report Type: 
  Country: None (occurrence: None)
  Receive Date: 20111129
  Receipt Date: 20111121
  Transmission Date: 20120403
  Serious: Yes (Other)
  Sender: FDA-Public Use
  Company Number: JP-US-EMD SERONO, INC.-7097488

PATIENT
  Age: 44 Year
  Sex: Female

DRUGS (3)
  1. PACLITAXEL [Suspect]
     Route: 042
  2. PACLITAXEL [Suspect]
     Indication: STEWART-TREVES SYNDROME
     Route: 013
     Dates: start: 20090801
  3. MITOXANTRONE [Suspect]
     Indication: STEWART-TREVES SYNDROME
     Route: 013
     Dates: start: 20090801

REACTIONS (2)
  - SENSORY DISTURBANCE [None]
  - NEUTROPENIA [None]
